FAERS Safety Report 7808570-8 (Version None)
Quarter: 2011Q4

REPORT INFORMATION
  Report Type: 
  Country: None (occurrence: None)
  Receive Date: 20111012
  Receipt Date: 20111007
  Transmission Date: 20120403
  Serious: No
  Sender: FDA-Public Use
  Company Number: US-PFIZER INC-2011240451

PATIENT
  Sex: Female
  Weight: 86.168 kg

DRUGS (4)
  1. METHOTREXATE [Concomitant]
     Dosage: 4 MG, WEEKLY
  2. GABAPENTIN [Suspect]
     Indication: FIBROMYALGIA
     Dosage: 300 MG, DAILY
     Dates: start: 20110101
  3. ETANERCEPT [Concomitant]
     Dosage: UNK
  4. NABUMETONE [Concomitant]
     Dosage: 750 MG, 2X/DAY

REACTIONS (4)
  - LACTOSE INTOLERANCE [None]
  - DYSPEPSIA [None]
  - ABDOMINAL DISTENSION [None]
  - DIARRHOEA [None]
